FAERS Safety Report 6052375-8 (Version None)
Quarter: 2009Q1

REPORT INFORMATION
  Report Type: 
  Country: None (occurrence: None)
  Receive Date: 20090121
  Receipt Date: 20080320
  Transmission Date: 20090719
  Serious: Yes (Other)
  Sender: FDA-Public Use
  Company Number: HQWYE614726AUG04

PATIENT
  Age: 58 Year
  Sex: Female
  Weight: 54.48 kg

DRUGS (7)
  1. PREMPRO [Suspect]
     Indication: HOT FLUSH
     Dosage: ORAL
     Route: 048
     Dates: start: 19970101, end: 19990101
  2. MEDROXYPROGESTERONE [Suspect]
     Indication: HORMONE REPLACEMENT THERAPY
  3. PREMARIN [Suspect]
     Indication: HOT FLUSH
     Dosage: ORAL
     Route: 048
     Dates: start: 19870101, end: 19980101
  4. PROVERA [Suspect]
     Indication: HOT FLUSH
     Dosage: ORAL
     Route: 048
     Dates: start: 19870101, end: 19980101
  5. HYDROCHLOROTHIAZIDE [Concomitant]
  6. NIFEDIPINE [Concomitant]
  7. ADALAT [Concomitant]

REACTIONS (1)
  - OVARIAN CANCER METASTATIC [None]
